FAERS Safety Report 8881351 (Version 2)
Quarter: 2013Q2

REPORT INFORMATION
  Report Type: Spontaneous
  Country: US (occurrence: None)
  Receive Date: 20120426
  Receipt Date: 20120703
  Transmission Date: 20140414
  Serious: No
  Sender: FDA-Public Use
  Company Number: PHEH2012US001831

PATIENT
  Age: 45 Year
  Sex: Male
  Weight: 83 kg

DRUGS (13)
  1. GILENYA [Suspect]
     Indication: MULTIPLE SCLEROSIS
     Route: 048
     Dates: start: 20120119
  2. GABAPENTIN (GABAPENTIN) [Concomitant]
  3. ALPRAZOLAM (ALPRAZOLAM [Concomitant]
  4. DANTROLENE  (DANTROLENE) [Concomitant]
  5. TAMSULOSIN (TAMSULOSIN) [Concomitant]
  6. VESICARE (SOLIFENACIN) [Concomitant]
  7. RITALIN (METHYLPHENIDATE HYDROCHLORIDE) [Concomitant]
  8. MELOXICAM (MELOXICAM) [Concomitant]
  9. CARBAMAZEPINE (CARBAMAZEPINE) [Concomitant]
  10. SERTRALINE (SERTRALINE) (SERTRALINE) [Concomitant]
  11. TRAMADOL (TRAMADOL) [Concomitant]
  12. IMITREX (SUMATRIPTAN SUCCINATE) [Concomitant]
  13. BACLOFEN (BACLOFEN) [Concomitant]

REACTIONS (4)
  - Influenza like illness [None]
  - Headache [None]
  - Somnolence [None]
  - Urinary tract infection [None]
